FAERS Safety Report 6599179-5 (Version None)
Quarter: 2010Q1

REPORT INFORMATION
  Report Type: 
  Country: None (occurrence: None)
  Receive Date: 20100224
  Receipt Date: 20100216
  Transmission Date: 20100710
  Serious: Yes (Hospitalization, Other)
  Sender: FDA-Public Use
  Company Number: US-JNJFOC-20090908763

PATIENT
  Sex: Female
  Weight: 62.14 kg

DRUGS (3)
  1. REMICADE [Suspect]
     Indication: RHEUMATOID ARTHRITIS
     Route: 042
     Dates: start: 20060101, end: 20090805
  2. REMICADE [Suspect]
     Route: 042
     Dates: start: 20060101, end: 20090805
  3. REMICADE [Suspect]
     Route: 042
     Dates: start: 20060101, end: 20090805

REACTIONS (2)
  - BUNION [None]
  - PRECANCEROUS CELLS PRESENT [None]
